FAERS Safety Report 8872549 (Version 1)
Quarter: 2012Q4

REPORT INFORMATION
  Report Type: 
  Country: US (occurrence: US)
  Receive Date: 20121026
  Receipt Date: 20121026
  Transmission Date: 20130627
  Serious: No
  Sender: FDA-Public Use
  Company Number: US-AMGEN-USASP2012051291

PATIENT
  Sex: Female

DRUGS (9)
  1. ENBREL [Suspect]
     Indication: PRODUCT USED FOR UNKNOWN INDICATION
     Dosage: 50 mg, qwk
     Route: 058
  2. NORVASC [Concomitant]
     Dosage: 2.5 mg, UNK
  3. SYNTHROID [Concomitant]
     Dosage: 2.5 mcg, UNK
  4. TRICOR                             /00090101/ [Concomitant]
     Dosage: 48 mg, UNK
  5. AVAPRO [Concomitant]
     Dosage: 150 mg, UNK
  6. ARAVA [Concomitant]
     Dosage: 10 mg, UNK
  7. ATENOLOL [Concomitant]
     Dosage: 25 mg, UNK
  8. ASPIRIN [Concomitant]
     Dosage: 81 mg, UNK
  9. DOXAZOSIN [Concomitant]
     Dosage: 1 mg, UNK

REACTIONS (3)
  - Injection site swelling [Unknown]
  - Injection site pruritus [Unknown]
  - Rash [Unknown]
